FAERS Safety Report 5853219-7 (Version None)
Quarter: 2008Q3

REPORT INFORMATION
  Report Type: 
  Country: None (occurrence: None)
  Receive Date: 20080821
  Receipt Date: 20080814
  Transmission Date: 20090109
  Serious: Yes (Hospitalization)
  Sender: FDA-Public Use
  Company Number: DE-WYE-G01951608

PATIENT
  Sex: Female
  Weight: 100 kg

DRUGS (1)
  1. TREVILOR RETARD [Suspect]
     Dosage: 40 CAPSULES (OVERDOSE AMOUNT 6000 MG)
     Route: 048
     Dates: start: 20080728, end: 20080728

REACTIONS (10)
  - ANURIA [None]
  - BLOOD CREATINE PHOSPHOKINASE INCREASED [None]
  - BLOOD CREATININE INCREASED [None]
  - COMA [None]
  - HYPERTHERMIA [None]
  - INTENTIONAL OVERDOSE [None]
  - MYDRIASIS [None]
  - RESPIRATORY DEPRESSION [None]
  - SOMNOLENCE [None]
  - SUICIDE ATTEMPT [None]
